FAERS Safety Report 15577679 (Version 3)
Quarter: 2024Q2

REPORT INFORMATION
  Report Type: Spontaneous
  Country: ES (occurrence: ES)
  Receive Date: 20181102
  Receipt Date: 20240531
  Transmission Date: 20240716
  Serious: Yes (Other)
  Sender: FDA-Public Use
  Company Number: ES-AUROBINDO-AUR-APL-2018-053395

PATIENT
  Age: 48 Year
  Sex: Male

DRUGS (4)
  1. QUETIAPINE [Suspect]
     Active Substance: QUETIAPINE
     Indication: Schizophrenia
     Dosage: 1200 MILLIGRAM, DAILY
     Route: 048
     Dates: start: 2013
  2. QUETIAPINE [Suspect]
     Active Substance: QUETIAPINE
     Dosage: 400 MILLIGRAM, DAILY
     Route: 048
  3. CLOZAPINE [Suspect]
     Active Substance: CLOZAPINE
     Indication: Schizophrenia
     Dosage: 600 MILLIGRAM, DAILY
     Route: 065
     Dates: start: 2013
  4. CLOZAPINE [Suspect]
     Active Substance: CLOZAPINE
     Dosage: 500 MILLIGRAM, DAILY
     Route: 065

REACTIONS (5)
  - Thinking abnormal [Recovered/Resolved]
  - Salivary hypersecretion [Recovered/Resolved]
  - Walking disability [Recovered/Resolved]
  - Sedation complication [Recovered/Resolved]
  - Tobacco interaction [Recovered/Resolved]
